FAERS Safety Report 11010327 (Version 2)
Quarter: 2015Q2

REPORT INFORMATION
  Report Type: Spontaneous
  Country: FR (occurrence: FR)
  Receive Date: 20150410
  Receipt Date: 20150521
  Transmission Date: 20150821
  Serious: Yes (Other)
  Sender: FDA-Public Use
  Company Number: FR-SA-2015SA044771

PATIENT
  Age: 89 Year
  Sex: Female

DRUGS (3)
  1. MONO-TILDIEM [Concomitant]
     Active Substance: DILTIAZEM HYDROCHLORIDE
     Route: 048
  2. MINISINTROM [Concomitant]
     Active Substance: ACENOCOUMAROL
     Route: 048
  3. PLAVIX [Suspect]
     Active Substance: CLOPIDOGREL BISULFATE
     Indication: STENT PLACEMENT
     Route: 048
     Dates: start: 2015

REACTIONS (3)
  - Mouth haemorrhage [Unknown]
  - Gingival pain [Unknown]
  - Gingival swelling [Unknown]

NARRATIVE: CASE EVENT DATE: 2015
